FAERS Safety Report 8536985-1 (Version None)
Quarter: 2012Q3

REPORT INFORMATION
  Report Type: 
  Country: None (occurrence: None)
  Receive Date: 20120713
  Receipt Date: 20120706
  Transmission Date: 20120928
  Serious: No
  Sender: FDA-Public Use
  Company Number: DSA_56423_2012

PATIENT
  Sex: Female
  Weight: 69.4003 kg

DRUGS (3)
  1. CARDIZEM CD [Suspect]
     Indication: PRODUCT USED FOR UNKNOWN INDICATION
     Dosage: 360 MG, QD, ORAL
     Route: 048
     Dates: start: 20071018
  2. GLUCOPHAGE [Concomitant]
  3. COREG [Concomitant]

REACTIONS (2)
  - DERMATITIS CONTACT [None]
  - OEDEMA PERIPHERAL [None]
